FAERS Safety Report 5653453-5 (Version None)
Quarter: 2008Q1

REPORT INFORMATION
  Report Type: 
  Country: None (occurrence: None)
  Receive Date: 20080306
  Receipt Date: 20080303
  Transmission Date: 20080703
  Serious: Yes (Other)
  Sender: FDA-Public Use
  Company Number: B0511100A

PATIENT
  Age: 51 Year
  Sex: Female

DRUGS (5)
  1. ZYBAN [Suspect]
     Dosage: 300MG PER DAY
     Route: 048
     Dates: start: 20080111
  2. PREDNISOLONE [Suspect]
     Indication: CHRONIC OBSTRUCTIVE PULMONARY DISEASE
     Dosage: 30MG PER DAY
     Route: 048
     Dates: start: 20080127
  3. OXAZEPAM [Concomitant]
     Dates: start: 20080101
  4. SERETIDE [Concomitant]
     Dates: start: 20070805
  5. COMBIVENT [Concomitant]
     Dates: start: 20070801

REACTIONS (4)
  - ANGIOEDEMA [None]
  - POLLAKIURIA [None]
  - RESTLESSNESS [None]
  - URTICARIA [None]
